FAERS Safety Report 7105810-8 (Version None)
Quarter: 2010Q4

REPORT INFORMATION
  Report Type: 
  Country: None (occurrence: None)
  Receive Date: 20101110
  Receipt Date: 20101101
  Transmission Date: 20110411
  Serious: No
  Sender: FDA-Public Use
  Company Number: CO-1183682

PATIENT
  Age: 47 Year
  Sex: Female

DRUGS (3)
  1. VIGAMOX [Suspect]
     Dosage: OPHTHALMIC
     Route: 047
  2. REFRESH TEARS (CARMELLOSE SODIUM) [Concomitant]
  3. AFLAREX (FLUOROMETHOLONE ACETATE) [Concomitant]

REACTIONS (5)
  - CORNEAL OEDEMA [None]
  - DRUG INEFFECTIVE [None]
  - EYE PRURITUS [None]
  - OCULAR HYPERAEMIA [None]
  - ULCERATIVE KERATITIS [None]
